FAERS Safety Report 9406837 (Version 1)
Quarter: 2013Q3

REPORT INFORMATION
  Report Type: Report from Study
  Country: CA (occurrence: CA)
  Receive Date: 20130718
  Receipt Date: 20130718
  Transmission Date: 20140515
  Serious: Yes (Other)
  Sender: FDA-Public Use
  Company Number: PHHY2013CA075803

PATIENT
  Sex: Female

DRUGS (2)
  1. GILENYA [Suspect]
     Indication: RELAPSING-REMITTING MULTIPLE SCLEROSIS
     Dosage: 0.5 MG, QD
     Route: 048
     Dates: start: 20111206
  2. DITROPAN [Concomitant]

REACTIONS (8)
  - Cyst [Not Recovered/Not Resolved]
  - Lower respiratory tract infection [Unknown]
  - Chest discomfort [Unknown]
  - Aphonia [Unknown]
  - Oropharyngeal pain [Unknown]
  - Blood creatine phosphokinase increased [Unknown]
  - Papule [Not Recovered/Not Resolved]
  - White blood cell count decreased [Unknown]
